FAERS Safety Report 9334560 (Version 1)
Quarter: 2013Q2

REPORT INFORMATION
  Report Type: Spontaneous
  Country: US (occurrence: US)
  Receive Date: 20130606
  Receipt Date: 20130606
  Transmission Date: 20140414
  Serious: No
  Sender: FDA-Public Use
  Company Number: US-AMGEN-USASP2013018016

PATIENT
  Age: 54 Year
  Sex: Female
  Weight: 53.06 kg

DRUGS (14)
  1. PROLIA [Suspect]
     Indication: OSTEOPOROSIS POSTMENOPAUSAL
     Dosage: 60 MG, UNK
     Dates: start: 201209
  2. PROLIA [Suspect]
     Indication: OSTEOPOROSIS
  3. PEPCID                             /00706001/ [Concomitant]
     Dosage: 10 MG, AS NECESSARY
  4. CALCITRIOL [Concomitant]
  5. PROPRANOLOL [Concomitant]
     Dosage: 10 MG, BID
  6. DIFLUCAN [Concomitant]
  7. GABAPENTIN [Concomitant]
     Dosage: 600 MG, BID
  8. HYDROCORT                          /00028602/ [Concomitant]
     Indication: MUSCLE DISORDER
     Dosage: 5 MG, UNK
     Dates: start: 201301
  9. ESTRADIOL [Concomitant]
     Dosage: 2.5 MG, UNK
  10. ACYCLOVIR                          /00587301/ [Concomitant]
     Dosage: 800 MG, BID
  11. LIPITOR [Concomitant]
     Dosage: 5 MG, UNK
  12. VITAMIN D                          /00107901/ [Concomitant]
     Dosage: 50000 IU, QWK
  13. PLAQUENIL                          /00072602/ [Concomitant]
     Dosage: 200 MG, BID
  14. B 12 [Concomitant]
     Dosage: 1000 MUG, UNK

REACTIONS (13)
  - Muscle spasms [Unknown]
  - Sinusitis [Recovered/Resolved]
  - Fungal infection [Unknown]
  - Osteoarthritis [Unknown]
  - Vitamin D decreased [Unknown]
  - High density lipoprotein decreased [Unknown]
  - Weight decreased [Unknown]
  - Increased appetite [Unknown]
  - Musculoskeletal pain [Unknown]
  - Arthralgia [Unknown]
  - Bone pain [Unknown]
  - Back pain [Unknown]
  - Pain in extremity [Unknown]
